FAERS Safety Report 4805214-4 (Version None)
Quarter: 2005Q4

REPORT INFORMATION
  Report Type: 
  Country: None (occurrence: None)
  Receive Date: 20051018
  Receipt Date: 20051006
  Transmission Date: 20060501
  Serious: No
  Sender: FDA-Public Use
  Company Number: 2005-133407-NL

PATIENT

DRUGS (1)
  1. DANAPAROID SODIUM [Suspect]
     Dosage: DF

REACTIONS (1)
  - TOXIC SKIN ERUPTION [None]
